FAERS Safety Report 14535292 (Version 1)
Quarter: 2018Q1

REPORT INFORMATION
  Report Type: Spontaneous
  Country: US (occurrence: US)
  Receive Date: 20180215
  Receipt Date: 20180215
  Transmission Date: 20180509
  Serious: Yes (Other)
  Sender: FDA-Public Use
  Company Number: US-GLAXOSMITHKLINE-US2018GSK024414

PATIENT
  Age: 27 Year
  Sex: Female

DRUGS (2)
  1. ALPRAZOLAM. [Suspect]
     Active Substance: ALPRAZOLAM
     Indication: PRODUCT USED FOR UNKNOWN INDICATION
     Dosage: 0.5 MG, (30 TABLETS)
     Route: 048
  2. BUPROPION. [Suspect]
     Active Substance: BUPROPION
     Indication: PRODUCT USED FOR UNKNOWN INDICATION
     Dosage: 150 MG, (30 TABLETS)
     Route: 048

REACTIONS (11)
  - Mental status changes [Recovering/Resolving]
  - Tachycardia [Recovering/Resolving]
  - Suicide attempt [Recovering/Resolving]
  - Agitation [Recovering/Resolving]
  - Overdose [Recovering/Resolving]
  - Electrocardiogram QT prolonged [Recovering/Resolving]
  - Tremor [Recovering/Resolving]
  - Skin lesion [Recovering/Resolving]
  - Macule [Recovering/Resolving]
  - Erythema multiforme [Recovering/Resolving]
  - Tachypnoea [Recovering/Resolving]
